FAERS Safety Report 10613664 (Version 1)
Quarter: 2014Q4

REPORT INFORMATION
  Report Type: Spontaneous
  Country: CN (occurrence: CN)
  Receive Date: 20141128
  Receipt Date: 20141128
  Transmission Date: 20150529
  Serious: Yes (Other)
  Sender: FDA-Public Use
  Company Number: CN-009507513-1411CHN009244

PATIENT
  Age: 57 Year
  Sex: Female

DRUGS (1)
  1. CLARITYNE [Suspect]
     Active Substance: LORATADINE
     Indication: HYPERSENSITIVITY
     Dosage: ONE TABLET
     Route: 048
     Dates: start: 20141116

REACTIONS (5)
  - Inner ear disorder [Unknown]
  - Adverse event [Unknown]
  - Productive cough [Unknown]
  - Hypoacusis [Unknown]
  - Tinnitus [Unknown]

NARRATIVE: CASE EVENT DATE: 20141116
